FAERS Safety Report 6435587-0 (Version None)
Quarter: 2009Q4

REPORT INFORMATION
  Report Type: 
  Country: None (occurrence: None)
  Receive Date: 20091111
  Receipt Date: 20091102
  Transmission Date: 20100525
  Serious: Yes (Hospitalization, Other)
  Sender: FDA-Public Use
  Company Number: US-ABBOTT-09P-163-0606785-00

PATIENT
  Sex: Female
  Weight: 81.72 kg

DRUGS (1)
  1. HUMIRA [Suspect]
     Indication: PSORIASIS
     Dates: start: 20070101

REACTIONS (7)
  - ASTHMA [None]
  - BRAIN OEDEMA [None]
  - DELUSION [None]
  - HALLUCINATION, AUDITORY [None]
  - HYPERTENSION [None]
  - LUNG INFECTION [None]
  - PYREXIA [None]
